FAERS Safety Report 20695664 (Version 1)
Quarter: 2022Q2

REPORT INFORMATION
  Report Type: Spontaneous
  Country: US (occurrence: None)
  Receive Date: 20220408
  Receipt Date: 20220408
  Transmission Date: 20220721
  Serious: Yes (Life-Threatening, Hospitalization)
  Sender: FDA-Public Use
  Company Number: None

PATIENT
  Age: 54 Year
  Sex: Female
  Weight: 115 kg

DRUGS (3)
  1. VANCOMYCIN [Suspect]
     Active Substance: VANCOMYCIN
     Indication: Abdominal wall wound
     Dosage: OTHER FREQUENCY : Q18H;?
     Route: 042
     Dates: start: 20220404, end: 20220407
  2. VANCOMYCIN [Suspect]
     Active Substance: VANCOMYCIN
     Indication: Wound infection
  3. VANCOMYCIN [Suspect]
     Active Substance: VANCOMYCIN
     Indication: Wound necrosis

REACTIONS (2)
  - Rash erythematous [None]
  - Skin exfoliation [None]

NARRATIVE: CASE EVENT DATE: 20220408
